FAERS Safety Report 22093378 (Version 1)
Quarter: 2023Q1

REPORT INFORMATION
  Report Type: Spontaneous
  Country: CH (occurrence: CH)
  Receive Date: 20230314
  Receipt Date: 20230314
  Transmission Date: 20230418
  Serious: Yes (Hospitalization)
  Sender: FDA-Public Use
  Company Number: CH-BAYER-2023A028872

PATIENT
  Sex: Female
  Weight: 140 kg

DRUGS (1)
  1. LEVONORGESTREL [Suspect]
     Active Substance: LEVONORGESTREL
     Indication: Contraception
     Dosage: 14?G/DAY
     Route: 015

REACTIONS (4)
  - Pregnancy with contraceptive device [None]
  - Stillbirth [None]
  - Uterine contractions during pregnancy [None]
  - Drug ineffective [None]
